FAERS Safety Report 20593855 (Version 4)
Quarter: 2022Q3

REPORT INFORMATION
  Report Type: Spontaneous
  Country: JP (occurrence: JP)
  Receive Date: 20220315
  Receipt Date: 20220715
  Transmission Date: 20221026
  Serious: No
  Sender: FDA-Public Use
  Company Number: JP-GLAXOSMITHKLINE-JP2022JPN044469

PATIENT

DRUGS (10)
  1. SOTROVIMAB [Suspect]
     Active Substance: SOTROVIMAB
     Indication: COVID-19
     Dosage: 500 MG/DAY
     Route: 042
     Dates: start: 20220304, end: 20220304
  2. FUROSEMIDE [Suspect]
     Active Substance: FUROSEMIDE
     Dosage: 20 MG/DAY
     Route: 048
     Dates: end: 20220323
  3. ASPIRIN [Suspect]
     Active Substance: ASPIRIN
     Dosage: 100 MG/DAY
     Route: 048
     Dates: end: 20220323
  4. LANSOPRAZOLE [Suspect]
     Active Substance: LANSOPRAZOLE
     Dosage: 15 MG/DAY
     Route: 048
     Dates: end: 20220323
  5. ACOTIAMIDE HYDROCHLORIDE [Suspect]
     Active Substance: ACOTIAMIDE HYDROCHLORIDE
     Dosage: 300 MG/DAY
     Route: 048
  6. LORAZEPAM [Suspect]
     Active Substance: LORAZEPAM
     Dosage: 2 MG/DAY
     Route: 048
  7. ETIZOLAM [Suspect]
     Active Substance: ETIZOLAM
     Dosage: 4 MG/DAY
     Route: 048
  8. CALONAL [Suspect]
     Active Substance: ACETAMINOPHEN
     Dosage: 1800 MG/DAY
     Route: 048
  9. FERRIC PYROPHOSPHATE [Suspect]
     Active Substance: FERRIC PYROPHOSPHATE
     Dosage: 500 MG/DAY
     Route: 048
  10. MAGNESIUM OXIDE [Suspect]
     Active Substance: MAGNESIUM OXIDE
     Dosage: 990 MG/DAY
     Route: 048

REACTIONS (1)
  - Exposure during pregnancy [Unknown]
